FAERS Safety Report 7563385-3 (Version None)
Quarter: 2011Q2

REPORT INFORMATION
  Report Type: 
  Country: None (occurrence: None)
  Receive Date: 20110622
  Receipt Date: 20110614
  Transmission Date: 20111010
  Serious: Yes (Death)
  Sender: FDA-Public Use
  Company Number: A0932085A

PATIENT
  Age: 72 Year
  Sex: Female

DRUGS (1)
  1. REQUIP [Suspect]
     Dosage: 1MG UNKNOWN
     Route: 065
     Dates: start: 20081201

REACTIONS (1)
  - CEREBROVASCULAR ACCIDENT [None]
